FAERS Safety Report 4828115-4 (Version None)
Quarter: 2005Q4

REPORT INFORMATION
  Report Type: 
  Country: None (occurrence: None)
  Receive Date: 20051110
  Receipt Date: 20051014
  Transmission Date: 20060501
  Serious: Yes (Hospitalization)
  Sender: FDA-Public Use
  Company Number: 2005S1010833

PATIENT
  Age: 19 Year
  Sex: Female
  Weight: 74.8435 kg

DRUGS (3)
  1. AMITRIPTYLINE HCL [Suspect]
     Indication: SOMNOLENCE
     Dosage: ORAL
     Route: 048
  2. PROZAC [Suspect]
  3. VICODIN [Suspect]

REACTIONS (1)
  - MULTIPLE DRUG OVERDOSE [None]
